FAERS Safety Report 7998396-7 (Version None)
Quarter: 2011Q4

REPORT INFORMATION
  Report Type: 
  Country: None (occurrence: None)
  Receive Date: 20111221
  Receipt Date: 20110920
  Transmission Date: 20120403
  Serious: No
  Sender: FDA-Public Use
  Company Number: US-GLAXOSMITHKLINE-A0945300A

PATIENT
  Age: 63 Year
  Sex: Male

DRUGS (6)
  1. NAPROXEN [Concomitant]
  2. ATENOLOL [Concomitant]
  3. LOVAZA [Suspect]
     Indication: BLOOD TRIGLYCERIDES INCREASED
     Dosage: 2G TWICE PER DAY
     Route: 048
     Dates: start: 20090101
  4. ADALAT CC [Concomitant]
  5. ASPIRIN [Concomitant]
  6. SIMVASTATIN [Concomitant]

REACTIONS (2)
  - DYSGEUSIA [None]
  - PRODUCT QUALITY ISSUE [None]
